FAERS Safety Report 23499230 (Version 1)
Quarter: 2024Q1

REPORT INFORMATION
  Report Type: Spontaneous
  Country: US (occurrence: None)
  Receive Date: 20240207
  Receipt Date: 20240207
  Transmission Date: 20240410
  Serious: Yes (Hospitalization)
  Sender: FDA-Public Use
  Company Number: None

PATIENT
  Age: 68 Year
  Sex: Male
  Weight: 76.9 kg

DRUGS (7)
  1. YESCARTA [Suspect]
     Active Substance: AXICABTAGENE CILOLEUCEL
     Indication: Follicular lymphoma
     Dosage: OTHER FREQUENCY : ONCE;?
     Route: 041
     Dates: start: 20231010
  2. ACTEMRA [Concomitant]
     Active Substance: TOCILIZUMAB
     Dates: start: 20231014, end: 20231016
  3. dexAMETHasone (Decadron) injection [Concomitant]
     Dates: start: 20231014, end: 20231031
  4. anakinra (Kineret) [Concomitant]
     Dates: start: 20231015, end: 20231024
  5. KEPPRA [Concomitant]
     Active Substance: LEVETIRACETAM
     Dates: start: 20231009
  6. acyclovir (Zovirax) [Concomitant]
     Dates: start: 20231011, end: 20240207
  7. lacosamide (Vimpat) [Concomitant]
     Dates: start: 20231015, end: 20231019

REACTIONS (3)
  - Cytokine release syndrome [None]
  - Immune effector cell-associated neurotoxicity syndrome [None]
  - Infusion related reaction [None]

NARRATIVE: CASE EVENT DATE: 20231010
